FAERS Safety Report 8832358 (Version 2)
Quarter: 2012Q4

REPORT INFORMATION
  Report Type: 
  Country: US (occurrence: US)
  Receive Date: 20121009
  Receipt Date: 20121012
  Transmission Date: 20130627
  Serious: Yes (Other)
  Sender: FDA-Public Use
  Company Number: CHPA2012US020696

PATIENT
  Age: 65 Year
  Sex: Female

DRUGS (5)
  1. 4 WAY FAST ACTING NASAL SPRAY [Suspect]
     Indication: HYPERSENSITIVITY
     Dosage: Unk, TID
     Route: 045
  2. DIOVAN [Concomitant]
     Dosage: Unk, Unk
  3. SIMVASTATIN [Concomitant]
     Dosage: Unk, Unk
  4. SERTRALINE [Concomitant]
     Dosage: Unk, Unk
  5. ANTIHYPERTENSIVES [Concomitant]
     Dosage: Unk, Unk

REACTIONS (4)
  - Breast cancer [Recovered/Resolved]
  - Colitis [Not Recovered/Not Resolved]
  - Off label use [Unknown]
  - Incorrect drug administration duration [Unknown]
